FAERS Safety Report 5505307-2 (Version None)
Quarter: 2007Q4

REPORT INFORMATION
  Report Type: 
  Country: None (occurrence: None)
  Receive Date: 20071102
  Receipt Date: 20071029
  Transmission Date: 20080405
  Serious: Yes (Other)
  Sender: FDA-Public Use
  Company Number: A0691288A

PATIENT
  Sex: Female

DRUGS (3)
  1. BUPROPION HYDROCHLORIDE [Suspect]
     Indication: DRUG USE FOR UNKNOWN INDICATION
     Route: 065
     Dates: start: 20060101
  2. WELLBUTRIN [Concomitant]
     Indication: DRUG USE FOR UNKNOWN INDICATION
     Route: 048
  3. SYNTHROID [Concomitant]

REACTIONS (3)
  - CRYING [None]
  - DEPRESSED MOOD [None]
  - SUICIDAL IDEATION [None]
